FAERS Safety Report 20748214 (Version 1)
Quarter: 2022Q2

REPORT INFORMATION
  Report Type: Spontaneous
  Country: BR (occurrence: None)
  Receive Date: 20220426
  Receipt Date: 20220426
  Transmission Date: 20220721
  Serious: Yes (Other)
  Sender: FDA-Public Use
  Company Number: BR-ROCHE-3079293

PATIENT
  Sex: Female
  Weight: 59 kg

DRUGS (1)
  1. HERCEPTIN [Suspect]
     Active Substance: TRASTUZUMAB
     Indication: Breast cancer
     Route: 065
     Dates: start: 20190918, end: 20190918

REACTIONS (2)
  - Feeling cold [Recovering/Resolving]
  - Tremor [Recovering/Resolving]
